FAERS Safety Report 5480770-4 (Version None)
Quarter: 2007Q4

REPORT INFORMATION
  Report Type: 
  Country: None (occurrence: None)
  Receive Date: 20071009
  Receipt Date: 20070928
  Transmission Date: 20080405
  Serious: Yes (Other)
  Sender: FDA-Public Use
  Company Number: FR-SHR-FR-2005-002016

PATIENT
  Age: 56 Year
  Sex: Male

DRUGS (7)
  1. BETAFERON [Suspect]
     Indication: RELAPSING-REMITTING MULTIPLE SCLEROSIS
     Dosage: 8 MIU, EVERY 2D
     Route: 058
     Dates: start: 20040930, end: 20050208
  2. ATENOLOL [Concomitant]
     Indication: HYPERTENSION
     Dosage: 25 MG, 1X/DAY
     Route: 048
     Dates: start: 20041126, end: 20050329
  3. ATENOLOL [Concomitant]
     Dosage: 50 MG, 1X/DAY
     Route: 048
     Dates: start: 20031101, end: 20041125
  4. ATENOLOL [Concomitant]
     Dosage: 25 MG, EVERY 2D
     Route: 048
     Dates: start: 20050331
  5. VALSARTAN [Concomitant]
     Indication: HYPERTENSION
     Dosage: 40 MG, 1X/DAY
     Route: 048
     Dates: start: 20041130
  6. PARACETAMOL [Concomitant]
     Indication: SCIATICA
     Dosage: 1 G, AS REQ'D
     Route: 048
     Dates: start: 20050201
  7. CLONAZEPAM [Concomitant]
     Indication: TRIGEMINAL NEURALGIA
     Dosage: 6 GTT, 1X/DAY
     Route: 048
     Dates: start: 20010101

REACTIONS (4)
  - BLOOD ALKALINE PHOSPHATASE INCREASED [None]
  - GAMMA-GLUTAMYLTRANSFERASE INCREASED [None]
  - HEPATIC ENZYME INCREASED [None]
  - TRANSAMINASES INCREASED [None]
